FAERS Safety Report 7391609-4 (Version None)
Quarter: 2011Q1

REPORT INFORMATION
  Report Type: 
  Country: None (occurrence: None)
  Receive Date: 20110324
  Receipt Date: 20110310
  Transmission Date: 20110831
  Serious: Yes (Other)
  Sender: FDA-Public Use
  Company Number: JP-2011-10478

PATIENT
  Age: 52 Year
  Sex: Female
  Weight: 70.2 kg

DRUGS (9)
  1. FUNGUARD (MICAFUNGIN SODIUM) [Concomitant]
  2. NEUPOGEN [Concomitant]
  3. TARGOCID [Concomitant]
  4. SODIUM CHLORIDE [Concomitant]
  5. ATARAX [Concomitant]
  6. SAMSCA [Suspect]
     Indication: WEIGHT INCREASED
     Dosage: 7.5 MG MILLIGRAM(S), QD, ORAL
     Route: 048
     Dates: start: 20110214, end: 20110215
  7. HANP (CARPERITIDE) [Concomitant]
  8. DORIBAX [Concomitant]
  9. LASIX [Concomitant]

REACTIONS (3)
  - DIABETIC HYPEROSMOLAR COMA [None]
  - HYPERNATRAEMIA [None]
  - CONVULSION [None]
